FAERS Safety Report 16933608 (Version 1)
Quarter: 2019Q4

REPORT INFORMATION
  Report Type: Spontaneous
  Country: GB (occurrence: GB)
  Receive Date: 20191018
  Receipt Date: 20191018
  Transmission Date: 20200122
  Serious: Yes (Disabling, Other)
  Sender: FDA-Public Use
  Company Number: GB-SA-2019SA282383

PATIENT
  Age: 27 Year
  Sex: Female

DRUGS (2)
  1. ALEMTUZUMAB [Suspect]
     Active Substance: ALEMTUZUMAB
     Indication: RELAPSING-REMITTING MULTIPLE SCLEROSIS
     Dosage: 1ST COURSE
     Dates: start: 201702
  2. IMIQUIMOD. [Suspect]
     Active Substance: IMIQUIMOD
     Indication: ANOGENITAL WARTS
     Dosage: UNK
     Dates: start: 2017

REACTIONS (7)
  - Wheelchair user [Unknown]
  - Leukoencephalopathy [Recovering/Resolving]
  - Quadriparesis [Recovering/Resolving]
  - Bedridden [Unknown]
  - Bulbar palsy [Unknown]
  - Motor dysfunction [Recovering/Resolving]
  - Aphasia [Recovering/Resolving]

NARRATIVE: CASE EVENT DATE: 201711
